FAERS Safety Report 15370206 (Version 1)
Quarter: 2018Q3

REPORT INFORMATION
  Report Type: Report from Study
  Country: US (occurrence: US)
  Receive Date: 20180911
  Receipt Date: 20180911
  Transmission Date: 20181010
  Serious: Yes (Other)
  Sender: FDA-Public Use
  Company Number: US-PFIZER INC-2018363144

PATIENT
  Age: 63 Year

DRUGS (10)
  1. BORTEZOMIB. [Suspect]
     Active Substance: BORTEZOMIB
     Dosage: UNK (DOSE REDUCED)
     Route: 058
  2. CYCLOPHOSPHAMIDE. [Suspect]
     Active Substance: CYCLOPHOSPHAMIDE
     Indication: PLASMABLASTIC LYMPHOMA
     Dosage: 750 MG/M2, CYCLIC (ON DAY 5)
     Route: 042
  3. PEGFILGRASTIM [Concomitant]
     Active Substance: PEGFILGRASTIM
     Dosage: 6 MG, CYCLIC (ON DAY 6)
     Route: 058
  4. DOXORUBICIN HCL [Suspect]
     Active Substance: DOXORUBICIN HYDROCHLORIDE
     Indication: PLASMABLASTIC LYMPHOMA
     Dosage: 10 MG/M2, DAILY (96?HOUR CONTINUOUS INFUSION, SIX CYCLES)
     Route: 042
  5. PREDNISONE. [Suspect]
     Active Substance: PREDNISONE
     Indication: PLASMABLASTIC LYMPHOMA
     Dosage: 60 MG/M2, 2X/DAY (SIX CYCLES, GIVEN FOR DAYS 1 THROUGH 5)
     Route: 048
  6. ETOPOSIDE. [Suspect]
     Active Substance: ETOPOSIDE
     Indication: PLASMABLASTIC LYMPHOMA
     Dosage: 50 MG/M2, DAILY (96?HOUR CONTINUOUS INFUSION, SIX CYCLES)
     Route: 042
  7. METHOTREXATE. [Concomitant]
     Active Substance: METHOTREXATE
     Indication: PROPHYLAXIS
     Dosage: 12 MG, CYCLIC (12 CYCLES)
     Route: 037
  8. BORTEZOMIB. [Suspect]
     Active Substance: BORTEZOMIB
     Indication: PLASMABLASTIC LYMPHOMA
     Dosage: 1.3 MG/M2, CYCLIC (SIX CYCLES, DAY 1, 4)
     Route: 058
  9. VINCRISTINE SULFATE. [Suspect]
     Active Substance: VINCRISTINE SULFATE
     Indication: PLASMABLASTIC LYMPHOMA
     Dosage: 0.4 MG/M2, DAILY (96?HOUR CONTINUOUS INFUSION, SIX CYCLES)
     Route: 042
  10. VALACYCLOVIR HCL [Concomitant]
     Active Substance: VALACYCLOVIR HYDROCHLORIDE
     Indication: PROPHYLAXIS
     Dosage: 500 MG, DAILY

REACTIONS (1)
  - Peripheral motor neuropathy [Unknown]
